FAERS Safety Report 9080347 (Version 1)
Quarter: 2013Q1

REPORT INFORMATION
  Report Type: Spontaneous
  Country: DK (occurrence: DK)
  Receive Date: 20130130
  Receipt Date: 20130130
  Transmission Date: 20140127
  Serious: Yes (Other)
  Sender: FDA-Public Use
  Company Number: DK-ASTRAZENECA-2013SE04658

PATIENT
  Age: 788 Month
  Sex: Female
  Weight: 73 kg

DRUGS (4)
  1. SEROQUEL [Suspect]
     Indication: BIPOLAR I DISORDER
     Route: 048
  2. AURORIX [Concomitant]
  3. LITHIUM [Concomitant]
  4. PANODIL [Concomitant]

REACTIONS (3)
  - Neoplasm malignant [Recovered/Resolved]
  - Palpitations [Unknown]
  - Restless legs syndrome [Unknown]
